FAERS Safety Report 21489154 (Version 1)
Quarter: 2022Q4

REPORT INFORMATION
  Report Type: Spontaneous
  Country: IT (occurrence: IT)
  Receive Date: 20221021
  Receipt Date: 20221021
  Transmission Date: 20230113
  Serious: Yes (Other)
  Sender: FDA-Public Use
  Company Number: IT-ALKEM LABORATORIES LIMITED-IT-ALKEM-2022-11046

PATIENT
  Age: 7 Year
  Sex: Female

DRUGS (6)
  1. ISONIAZID [Suspect]
     Active Substance: ISONIAZID
     Indication: Encephalitis
     Dosage: UNK
     Route: 065
  2. AMIKACIN [Concomitant]
     Active Substance: AMIKACIN
     Indication: Encephalitis
     Dosage: UNK
     Route: 065
  3. Moxifoxacin [Concomitant]
     Indication: Encephalitis
     Dosage: UNK
     Route: 065
  4. ETHAMBUTOL [Concomitant]
     Active Substance: ETHAMBUTOL HYDROCHLORIDE
     Indication: Encephalitis
     Dosage: UNK
     Route: 065
  5. CYCLOSERINE [Concomitant]
     Active Substance: CYCLOSERINE
     Indication: Encephalitis
     Dosage: UNK
     Route: 065
  6. LINEZOLID [Concomitant]
     Active Substance: LINEZOLID
     Indication: Encephalitis
     Dosage: UNK
     Route: 065

REACTIONS (1)
  - Encephalitis [Recovering/Resolving]
